FAERS Safety Report 6267528-3 (Version None)
Quarter: 2009Q3

REPORT INFORMATION
  Report Type: 
  Country: None (occurrence: None)
  Receive Date: 20090714
  Receipt Date: 20090702
  Transmission Date: 20100115
  Serious: Yes (Hospitalization, Other)
  Sender: FDA-Public Use
  Company Number: PHHY2009JP13999

PATIENT
  Age: 70 Year
  Sex: Male

DRUGS (3)
  1. TEGRETOL [Suspect]
     Indication: EPILEPSY
     Dosage: 300 MG, BID
     Route: 048
     Dates: start: 20090207, end: 20090301
  2. STEROIDS NOS [Concomitant]
  3. BAKTAR [Concomitant]
     Dosage: 14 MG, BIW

REACTIONS (8)
  - BODY TEMPERATURE INCREASED [None]
  - GLOSSITIS [None]
  - LEUKOPLAKIA ORAL [None]
  - MALNUTRITION [None]
  - ORAL MUCOSA EROSION [None]
  - PHARYNGEAL EROSION [None]
  - PHARYNGITIS [None]
  - STOMATITIS [None]
